FAERS Safety Report 19862841 (Version 1)
Quarter: 2021Q3

REPORT INFORMATION
  Report Type: Spontaneous
  Country: IT (occurrence: IT)
  Receive Date: 20210921
  Receipt Date: 20210921
  Transmission Date: 20211014
  Serious: Yes (Other)
  Sender: FDA-Public Use
  Company Number: IT-PFIZER INC-202101170768

PATIENT
  Age: 36 Year
  Sex: Female

DRUGS (3)
  1. DOCETAXEL. [Suspect]
     Active Substance: DOCETAXEL
     Dosage: RESUMED AT 25% REDUCED DOSE
  2. TRASTUZUMAB. [Suspect]
     Active Substance: TRASTUZUMAB
     Indication: TRIPLE POSITIVE BREAST CANCER
     Dosage: 8 MG/KG LOADING DOSE, FOLLOWED BY 6 MG/KG EVERY THREE WEEKS FOR FOUR CYCLES
     Dates: start: 201201, end: 201204
  3. DOCETAXEL. [Suspect]
     Active Substance: DOCETAXEL
     Indication: TRIPLE POSITIVE BREAST CANCER
     Dosage: 100 MG/M2, CYCLIC EVERY THREE WEEKS FOR FOUR CYCLES
     Dates: start: 201201, end: 201204

REACTIONS (2)
  - Hypertransaminasaemia [Recovering/Resolving]
  - Hepatotoxicity [Recovering/Resolving]

NARRATIVE: CASE EVENT DATE: 2012
